FAERS Safety Report 5488117-4 (Version None)
Quarter: 2007Q4

REPORT INFORMATION
  Report Type: 
  Country: None (occurrence: None)
  Receive Date: 20071005
  Receipt Date: 20070808
  Transmission Date: 20080405
  Serious: No
  Sender: FDA-Public Use
  Company Number: PHEH2007US10954

PATIENT
  Age: 52 Year
  Sex: Male
  Weight: 122.4 kg

DRUGS (1)
  1. TEKTURNA [Suspect]
     Dosage: 300 MG QD ORAL
     Route: 048
     Dates: start: 20070705, end: 20070807

REACTIONS (1)
  - PAIN IN EXTREMITY [None]
